FAERS Safety Report 7942816-0 (Version None)
Quarter: 2011Q4

REPORT INFORMATION
  Report Type: 
  Country: None (occurrence: None)
  Receive Date: 20111128
  Receipt Date: 20111122
  Transmission Date: 20120403
  Serious: Yes (Other)
  Sender: FDA-Public Use
  Company Number: FR-SANOFI-AVENTIS-2011SA076627

PATIENT
  Age: 68 Year
  Sex: Male

DRUGS (1)
  1. MULTAQ [Suspect]
     Indication: ARRHYTHMIA
     Route: 048
     Dates: start: 20101206, end: 20110124

REACTIONS (9)
  - CHROMATURIA [None]
  - DIARRHOEA [None]
  - WEIGHT DECREASED [None]
  - DYSGEUSIA [None]
  - NAUSEA [None]
  - ASTHENIA [None]
  - POOR DENTAL CONDITION [None]
  - GINGIVAL BLEEDING [None]
  - DECREASED APPETITE [None]
